FAERS Safety Report 5662409-8 (Version None)
Quarter: 2008Q1

REPORT INFORMATION
  Report Type: 
  Country: None (occurrence: None)
  Receive Date: 20080313
  Receipt Date: 20080305
  Transmission Date: 20080703
  Serious: Yes (Other)
  Sender: FDA-Public Use
  Company Number: US-JNJFOC-20080302169

PATIENT
  Sex: Male
  Weight: 147.42 kg

DRUGS (2)
  1. DURAGESIC-100 [Suspect]
     Indication: NECK PAIN
     Route: 062
  2. FENTANYL TRANSDERMAL SYSTEM [Suspect]
     Indication: NECK PAIN
     Route: 062

REACTIONS (4)
  - CHEST PAIN [None]
  - DRUG TOXICITY [None]
  - DYSPNOEA [None]
  - NECK PAIN [None]
